FAERS Safety Report 23742677 (Version 4)
Quarter: 2025Q4

REPORT INFORMATION
  Report Type: Spontaneous
  Country: JP (occurrence: JP)
  Receive Date: 20240415
  Receipt Date: 20251008
  Transmission Date: 20260117
  Serious: Yes (Death, Other)
  Sender: BRISTOL-MYERS SQUIBB COMPANY
  Company Number: JP-BRISTOL-MYERS SQUIBB COMPANY-2024-058471

PATIENT
  Age: 80 Year
  Sex: Male

DRUGS (6)
  1. YERVOY [Suspect]
     Active Substance: IPILIMUMAB
     Indication: Non-small cell lung cancer
     Dates: start: 20220413, end: 20220413
  2. YERVOY [Suspect]
     Active Substance: IPILIMUMAB
     Dates: start: 20220517, end: 20220517
  3. YERVOY [Suspect]
     Active Substance: IPILIMUMAB
     Dates: start: 20220607, end: 20220607
  4. OPDIVO [Suspect]
     Active Substance: NIVOLUMAB
     Indication: Non-small cell lung cancer
     Dates: start: 20220413, end: 20220413
  5. OPDIVO [Suspect]
     Active Substance: NIVOLUMAB
     Dates: start: 20220517, end: 20220517
  6. OPDIVO [Suspect]
     Active Substance: NIVOLUMAB
     Dates: start: 20220607, end: 20220607

REACTIONS (1)
  - Death [Fatal]
